FAERS Safety Report 25166365 (Version 1)
Quarter: 2025Q2

REPORT INFORMATION
  Report Type: Spontaneous
  Country: CN (occurrence: CN)
  Receive Date: 20250407
  Receipt Date: 20250407
  Transmission Date: 20250716
  Serious: No
  Sender: ALKEM
  Company Number: CN-ALKEM LABORATORIES LIMITED-CN-ALKEM-2025-02959

PATIENT
  Age: 7 Year
  Sex: Male

DRUGS (16)
  1. TOPIRAMATE [Suspect]
     Active Substance: TOPIRAMATE
     Indication: Status epilepticus
     Route: 065
  2. TOPIRAMATE [Suspect]
     Active Substance: TOPIRAMATE
     Route: 048
  3. METHYLPREDNISOLONE [Suspect]
     Active Substance: METHYLPREDNISOLONE
     Indication: Status epilepticus
     Dosage: 20 MILLIGRAM/KILOGRAM, QD (HIGH-DOSE, PULSE THERAPY REPEATED AFTER 4 DAYS)
     Route: 042
  4. PERAMPANEL [Suspect]
     Active Substance: PERAMPANEL
     Indication: Status epilepticus
     Route: 065
  5. PERAMPANEL [Suspect]
     Active Substance: PERAMPANEL
     Route: 048
  6. MIDAZOLAM [Suspect]
     Active Substance: MIDAZOLAM
     Indication: Status epilepticus
     Route: 042
  7. MIDAZOLAM [Suspect]
     Active Substance: MIDAZOLAM
     Route: 042
  8. MIDAZOLAM [Suspect]
     Active Substance: MIDAZOLAM
     Route: 042
  9. CLONAZEPAM [Concomitant]
     Active Substance: CLONAZEPAM
     Indication: Seizure
     Route: 065
  10. CLONAZEPAM [Concomitant]
     Active Substance: CLONAZEPAM
     Route: 048
  11. LACOSAMIDE [Concomitant]
     Active Substance: LACOSAMIDE
     Indication: Seizure
     Route: 065
  12. LEVETIRACETAM [Concomitant]
     Active Substance: LEVETIRACETAM
     Indication: Hemiclonic seizure
     Route: 065
  13. LEVETIRACETAM [Concomitant]
     Active Substance: LEVETIRACETAM
     Indication: Seizure
  14. PREDNISONE [Concomitant]
     Active Substance: PREDNISONE
     Indication: Product used for unknown indication
     Route: 065
  15. VALPROATE [Concomitant]
     Active Substance: VALPROIC ACID
     Indication: Seizure
     Route: 065
  16. VALPROATE [Concomitant]
     Active Substance: VALPROIC ACID
     Route: 048

REACTIONS (1)
  - Drug ineffective [Unknown]
